FAERS Safety Report 21863274 (Version 1)
Quarter: 2023Q1

REPORT INFORMATION
  Report Type: Spontaneous
  Country: US (occurrence: US)
  Receive Date: 20230115
  Receipt Date: 20230115
  Transmission Date: 20230417
  Serious: Yes (Other)
  Sender: FDA-Public Use
  Company Number: US-ASTELLAS-2022US043339

PATIENT
  Age: 72 Year
  Sex: Male

DRUGS (3)
  1. PADCEV [Suspect]
     Active Substance: ENFORTUMAB VEDOTIN-EJFV
     Indication: Transitional cell carcinoma
     Dosage: UNK UNK, OTHER (EVERY WEEK FOR 3 WEEKS AND THEN ONE WEEK OFF)
     Route: 065
     Dates: start: 202112
  2. PADCEV [Suspect]
     Active Substance: ENFORTUMAB VEDOTIN-EJFV
     Dosage: UNK UNK, OTHER (EVERY WEEK FOR 3 WEEKS AND THEN ONE WEEK OFF)
     Route: 065
     Dates: end: 2022
  3. PADCEV [Suspect]
     Active Substance: ENFORTUMAB VEDOTIN-EJFV
     Dosage: 80 MG, OTHER (EVERY WEEK FOR 3 WEEKS AND THEN ONE WEEK OFF)
     Route: 065
     Dates: start: 2022

REACTIONS (9)
  - Neuropathy peripheral [Unknown]
  - Nausea [Recovered/Resolved]
  - Rash [Unknown]
  - Gait inability [Unknown]
  - Dysphonia [Unknown]
  - Chest pain [Unknown]
  - Hand deformity [Unknown]
  - Fall [Unknown]
  - Decreased appetite [Unknown]
